FAERS Safety Report 23137223 (Version 1)
Quarter: 2023Q4

REPORT INFORMATION
  Report Type: Spontaneous
  Country: CN (occurrence: CN)
  Receive Date: 20231102
  Receipt Date: 20231102
  Transmission Date: 20240110
  Serious: Yes (Other)
  Sender: FDA-Public Use
  Company Number: CN-AMGEN-CHNSP2023192009

PATIENT
  Age: 72 Year
  Sex: Female

DRUGS (2)
  1. FILGRASTIM [Suspect]
     Active Substance: FILGRASTIM
     Indication: Myelosuppression
     Dosage: UNK
     Route: 058
  2. CAMRELIZUMAB [Concomitant]
     Active Substance: CAMRELIZUMAB
     Dosage: 200 MILLIGRAM, Q3WK

REACTIONS (1)
  - Squamous cell carcinoma antigen increased [Unknown]
